FAERS Safety Report 10990084 (Version 5)
Quarter: 2015Q2

REPORT INFORMATION
  Report Type: Report from Study
  Country: CZ (occurrence: CZ)
  Receive Date: 20150406
  Receipt Date: 20150522
  Transmission Date: 20150821
  Serious: Yes (Hospitalization)
  Sender: FDA-Public Use
  Company Number: CZ-ROCHE-1560273

PATIENT
  Age: 64 Year
  Sex: Male
  Weight: 83 kg

DRUGS (14)
  1. BETAHISTINE [Concomitant]
     Active Substance: BETAHISTINE
  2. INDAP [Concomitant]
  3. SANGONA [Concomitant]
  4. BLINDED IDELALISIB [Suspect]
     Active Substance: IDELALISIB
     Indication: B-CELL LYMPHOMA
     Route: 048
     Dates: start: 20150302, end: 20150312
  5. BERODUAL [Concomitant]
     Active Substance: FENOTEROL HYDROBROMIDE\IPRATROPIUM BROMIDE
  6. KALNORMIN [Concomitant]
     Active Substance: POTASSIUM CHLORIDE
  7. BENDAMUSTINE [Suspect]
     Active Substance: BENDAMUSTINE
     Indication: B-CELL LYMPHOMA
     Dosage: CYCLIC
     Route: 042
     Dates: start: 20150302, end: 20150303
  8. DETRALEX [Concomitant]
     Active Substance: DIOSMIN\HESPERIDIN
  9. THEOPLUS [Concomitant]
  10. MILURIT [Concomitant]
     Active Substance: ALLOPURINOL
  11. RITUXIMAB [Suspect]
     Active Substance: RITUXIMAB
     Indication: B-CELL LYMPHOMA
     Dosage: 768.5, CYCLICAL
     Route: 042
     Dates: start: 20150302, end: 20150302
  12. RANISEN [Concomitant]
  13. LAKEA [Concomitant]
  14. VEROGALID [Concomitant]

REACTIONS (2)
  - Vertigo [Recovered/Resolved with Sequelae]
  - Vomiting [Recovered/Resolved]

NARRATIVE: CASE EVENT DATE: 20150309
